FAERS Safety Report 8291396-1 (Version None)
Quarter: 2012Q2

REPORT INFORMATION
  Report Type: 
  Country: None (occurrence: None)
  Receive Date: 20120417
  Receipt Date: 20120319
  Transmission Date: 20120825
  Serious: Yes (Other)
  Sender: FDA-Public Use
  Company Number: AU-GLAXOSMITHKLINE-B0790318A

PATIENT
  Sex: Male
  Weight: 90 kg

DRUGS (11)
  1. COLOXYL + SENNA [Concomitant]
  2. METOPROLOL TARTRATE [Concomitant]
  3. TOLVON [Concomitant]
  4. THIAZIDE DIURETIC [Suspect]
     Indication: PRODUCT USED FOR UNKNOWN INDICATION
     Route: 065
  5. ATACAND [Concomitant]
  6. HYDROCHLOROTHIAZIDE [Concomitant]
  7. PANTOPRAZOLE [Concomitant]
  8. CARTIA XT [Concomitant]
  9. AVODART [Suspect]
     Indication: BENIGN PROSTATIC HYPERPLASIA
     Dosage: 500MCG PER DAY
     Route: 065
     Dates: start: 20110301
  10. CARDIAZEM [Concomitant]
  11. VITAMIN D [Concomitant]

REACTIONS (1)
  - SOLAR URTICARIA [None]
